FAERS Safety Report 22135006 (Version 2)
Quarter: 2025Q3

REPORT INFORMATION
  Report Type: Spontaneous
  Country: EU (occurrence: EU)
  Receive Date: 20230324
  Receipt Date: 20250707
  Transmission Date: 20251021
  Serious: Yes (Other)
  Sender: AUROBINDO
  Company Number: EU-DSJP-DSJ-2023-109125AA

PATIENT
  Age: 12 Year
  Weight: 83 kg

DRUGS (3)
  1. PRAVASTATIN [Suspect]
     Active Substance: PRAVASTATIN
     Indication: Type IIa hyperlipidaemia
     Route: 065
  2. PRAVASTATIN [Suspect]
     Active Substance: PRAVASTATIN
     Indication: Metabolic syndrome
  3. PRAVASTATIN [Suspect]
     Active Substance: PRAVASTATIN
     Indication: Hepatic steatosis

REACTIONS (1)
  - Hypertransaminasaemia [Not Recovered/Not Resolved]
